FAERS Safety Report 4881702-X (Version None)
Quarter: 2005Q4

REPORT INFORMATION
  Report Type: 
  Country: None (occurrence: None)
  Receive Date: 20051201
  Receipt Date: 20050719
  Transmission Date: 20060501
  Serious: No
  Sender: FDA-Public Use
  Company Number: 2005PV000569

PATIENT
  Sex: Male

DRUGS (1)
  1. BYETTA [Suspect]
     Route: 065

REACTIONS (1)
  - HOT FLUSH [None]
